FAERS Safety Report 5441527-3 (Version None)
Quarter: 2007Q3

REPORT INFORMATION
  Report Type: 
  Country: None (occurrence: None)
  Receive Date: 20070829
  Receipt Date: 20070820
  Transmission Date: 20080115
  Serious: Yes (Hospitalization)
  Sender: FDA-Public Use
  Company Number: 2007BI015108

PATIENT
  Age: 35 Year
  Sex: Male

DRUGS (1)
  1. NATALIZUMAB [Suspect]
     Indication: MULTIPLE SCLEROSIS
     Dosage: 300 MG; QM; IV
     Route: 042
     Dates: start: 20070101

REACTIONS (5)
  - CALCULUS BLADDER [None]
  - RENAL TUBULAR NECROSIS [None]
  - SEPSIS [None]
  - URETHRAL OBSTRUCTION [None]
  - URINARY TRACT INFECTION [None]
